FAERS Safety Report 8607384 (Version 3)
Quarter: 2014Q1

REPORT INFORMATION
  Report Type: Spontaneous
  Country: US (occurrence: US)
  Receive Date: 20120611
  Receipt Date: 20140113
  Transmission Date: 20141002
  Serious: Yes (Hospitalization, Other)
  Sender: FDA-Public Use
  Company Number: US-ASTRAZENECA-2012SE35971

PATIENT
  Age: 11704 Day
  Sex: Female
  Weight: 77.1 kg

DRUGS (9)
  1. NEXIUM [Suspect]
     Indication: GASTRIC DISORDER
     Route: 048
     Dates: start: 2002, end: 2011
  2. NEXIUM [Suspect]
     Indication: GASTRIC DISORDER
     Route: 048
     Dates: start: 20020921
  3. ZANTAC [Concomitant]
  4. TAGAMET [Concomitant]
  5. PEPCID [Concomitant]
  6. NECON [Concomitant]
     Dosage: 1/35-28 TAB
     Dates: start: 20020316
  7. ZOLOFT [Concomitant]
     Dates: start: 20021004
  8. METOCLOPRAM [Concomitant]
     Dates: start: 20021016
  9. OXYBUTYNIN [Concomitant]
     Dates: start: 20021105

REACTIONS (14)
  - Spinal disorder [Unknown]
  - Lumbar spinal stenosis [Unknown]
  - Lumbar radiculopathy [Unknown]
  - Intervertebral disc degeneration [Unknown]
  - Osteoporosis [Unknown]
  - Facial bones fracture [Unknown]
  - Fibromyalgia [Unknown]
  - Restless legs syndrome [Unknown]
  - Arthritis [Unknown]
  - Neuropathy peripheral [Unknown]
  - Loss of consciousness [Unknown]
  - Rheumatoid arthritis [Unknown]
  - Osteoarthritis [Unknown]
  - Depression [Unknown]
